FAERS Safety Report 12660428 (Version 1)
Quarter: 2016Q3

REPORT INFORMATION
  Report Type: Spontaneous
  Country: US (occurrence: US)
  Receive Date: 20160817
  Receipt Date: 20160817
  Transmission Date: 20161109
  Serious: Yes (Death, Other)
  Sender: FDA-Public Use
  Company Number: US-SAOL THERAPEUTICS-2016SAO00382

PATIENT
  Sex: Male

DRUGS (2)
  1. BACLOFEN. [Suspect]
     Active Substance: BACLOFEN
     Indication: SPINAL CORD INJURY
  2. BACLOFEN. [Suspect]
     Active Substance: BACLOFEN
     Indication: MUSCLE SPASTICITY
     Route: 037

REACTIONS (7)
  - Death [Fatal]
  - Respiratory disorder [Unknown]
  - Malaise [Unknown]
  - Decreased appetite [Unknown]
  - Therapeutic response decreased [Unknown]
  - Asthenia [Unknown]
  - Dizziness [Unknown]
